FAERS Safety Report 17001882 (Version 1)
Quarter: 2019Q4

REPORT INFORMATION
  Report Type: Spontaneous
  Country: US (occurrence: US)
  Receive Date: 20191106
  Receipt Date: 20191106
  Transmission Date: 20200122
  Serious: No
  Sender: FDA-Public Use
  Company Number: US-PFIZER INC-2019475013

PATIENT
  Age: 79 Year
  Sex: Male
  Weight: 86.18 kg

DRUGS (1)
  1. EUCRISA [Suspect]
     Active Substance: CRISABOROLE
     Indication: ECZEMA
     Dosage: TO AFFECTED AREA TWICE DAILY (APPLIED EXTERNALLY)
     Dates: start: 20190924, end: 201910

REACTIONS (2)
  - Drug ineffective [Not Recovered/Not Resolved]
  - Eczema [Not Recovered/Not Resolved]
